FAERS Safety Report 7113630-3 (Version None)
Quarter: 2010Q4

REPORT INFORMATION
  Report Type: 
  Country: None (occurrence: None)
  Receive Date: 20101119
  Receipt Date: 20101111
  Transmission Date: 20110411
  Serious: Yes (Death)
  Sender: FDA-Public Use
  Company Number: JP-ROCHE-737978

PATIENT
  Age: 59 Year
  Sex: Female

DRUGS (3)
  1. XELODA [Suspect]
     Indication: BREAST CANCER METASTATIC
     Dosage: NOTE: IT IS ONE ADMINISTERING WEEKLY HOLIDAY MEDICINE FOR TWO WEEKS.
     Route: 048
     Dates: start: 20080501
  2. PACLITAXEL [Concomitant]
     Route: 041
  3. PACLITAXEL [Concomitant]
     Route: 041

REACTIONS (1)
  - ENCEPHALOPATHY [None]
